FAERS Safety Report 13276816 (Version 2)
Quarter: 2017Q1

REPORT INFORMATION
  Report Type: Spontaneous
  Country: TR (occurrence: TR)
  Receive Date: 20170228
  Receipt Date: 20170309
  Transmission Date: 20170428
  Serious: Yes (Hospitalization)
  Sender: FDA-Public Use
  Company Number: TR-INCYTE CORPORATION-2017IN001352

PATIENT
  Age: 68 Year
  Sex: Female

DRUGS (1)
  1. JAKAVI [Suspect]
     Active Substance: RUXOLITINIB
     Indication: PRODUCT USED FOR UNKNOWN INDICATION
     Dosage: UNK
     Route: 065

REACTIONS (5)
  - Full blood count decreased [Unknown]
  - General physical health deterioration [Unknown]
  - Lymphoma [Unknown]
  - Splenomegaly [Unknown]
  - Hepatomegaly [Unknown]
